FAERS Safety Report 18665851 (Version 2)
Quarter: 2021Q1

REPORT INFORMATION
  Report Type: Spontaneous
  Country: PT (occurrence: PT)
  Receive Date: 20201226
  Receipt Date: 20210106
  Transmission Date: 20210419
  Serious: Yes (Other)
  Sender: FDA-Public Use
  Company Number: PT-TEVA-2020-PT-1861671

PATIENT
  Age: 79 Year
  Sex: Female

DRUGS (2)
  1. OXALIPLATINA KABI [Suspect]
     Active Substance: OXALIPLATIN
     Indication: GASTRIC CANCER
     Dosage: 182MG 21 / 21DAYS
     Route: 042
     Dates: start: 20201110, end: 20201110
  2. CAPECITABINE. [Suspect]
     Active Substance: CAPECITABINE
     Indication: GASTRIC CANCER
     Dosage: UNIT DOSE 3300 MG ,1650 MG TWICE A DAY ? 14?DAY CYCLE
     Route: 048
     Dates: start: 20201111

REACTIONS (1)
  - Mucosal inflammation [Unknown]

NARRATIVE: CASE EVENT DATE: 202011
